FAERS Safety Report 20433706 (Version 3)
Quarter: 2022Q1

REPORT INFORMATION
  Report Type: Spontaneous
  Country: PL (occurrence: PL)
  Receive Date: 20220205
  Receipt Date: 20220218
  Transmission Date: 20220424
  Serious: Yes (Life-Threatening)
  Sender: FDA-Public Use
  Company Number: None

PATIENT
  Age: 24 Year
  Sex: Male
  Weight: 57 kg

DRUGS (1)
  1. CONCERTA [Suspect]
     Active Substance: METHYLPHENIDATE HYDROCHLORIDE
     Indication: Product used for unknown indication
     Dosage: THE PATIENT TOOK 24 TABLETS
     Route: 065

REACTIONS (7)
  - Seizure [Recovered/Resolved]
  - Drug abuse [Recovered/Resolved]
  - Affective disorder [Recovered/Resolved]
  - Mydriasis [Recovered/Resolved]
  - Tachycardia [Recovered/Resolved]
  - Anxiety [Recovered/Resolved]
  - Overdose [Recovered/Resolved]

NARRATIVE: CASE EVENT DATE: 20210105
